FAERS Safety Report 16626915 (Version 1)
Quarter: 2019Q3

REPORT INFORMATION
  Report Type: Spontaneous
  Country: US (occurrence: US)
  Receive Date: 20190724
  Receipt Date: 20190724
  Transmission Date: 20191004
  Serious: No
  Sender: FDA-Public Use
  Company Number: US-SA-2019SA194982

PATIENT
  Age: 74 Year
  Sex: Female

DRUGS (2)
  1. TOUJEO [Suspect]
     Active Substance: INSULIN GLARGINE
     Indication: TYPE 2 DIABETES MELLITUS
     Dosage: 100 OR 120 UNITS IN THE MORNING, 55 OR 60 UNITS IN NIGHT
     Route: 065
  2. TOUJEO [Suspect]
     Active Substance: INSULIN GLARGINE
     Dosage: 100 UNITS AM AND 60 UNITS PM UNK
     Route: 065

REACTIONS (1)
  - Inappropriate schedule of product administration [Unknown]
